FAERS Safety Report 7666059-3 (Version None)
Quarter: 2011Q3

REPORT INFORMATION
  Report Type: 
  Country: None (occurrence: None)
  Receive Date: 20110806
  Receipt Date: 20110526
  Transmission Date: 20111222
  Serious: No
  Sender: FDA-Public Use
  Company Number: US-ABBOTT-11P-163-0728609-00

PATIENT
  Sex: Female
  Weight: 59.02 kg

DRUGS (3)
  1. CONSTIPATION MED OTC [Concomitant]
     Indication: PRODUCT USED FOR UNKNOWN INDICATION
  2. PLAVIX [Concomitant]
     Indication: CEREBROVASCULAR ACCIDENT
  3. NIASPAN [Suspect]
     Indication: BLOOD CHOLESTEROL
     Dates: start: 20110311

REACTIONS (4)
  - ERYTHEMA [None]
  - SLEEP DISORDER [None]
  - FLUSHING [None]
  - PRURITUS [None]
